FAERS Safety Report 4703923-9 (Version None)
Quarter: 2005Q2

REPORT INFORMATION
  Report Type: 
  Country: None (occurrence: None)
  Receive Date: 20050628
  Receipt Date: 20050614
  Transmission Date: 20051028
  Serious: Yes (Hospitalization)
  Sender: FDA-Public Use
  Company Number: USA050597461

PATIENT
  Age: 72 Year
  Sex: Male
  Weight: 68 kg

DRUGS (7)
  1. ALIMTA [Suspect]
     Indication: MESOTHELIOMA
     Dosage: 925 MG
     Dates: start: 20050503
  2. CISPLATIN [Concomitant]
  3. COUMADIN [Concomitant]
  4. VITAMIN B-12 [Concomitant]
  5. FOLIC ACID [Concomitant]
  6. DEXAMETHASONE [Concomitant]
  7. LASIX (FUROSEMIDE 00032601/) [Concomitant]

REACTIONS (7)
  - ANOREXIA [None]
  - BLOOD POTASSIUM DECREASED [None]
  - DEHYDRATION [None]
  - INTERNATIONAL NORMALISED RATIO INCREASED [None]
  - NAUSEA [None]
  - RENAL FAILURE ACUTE [None]
  - VOMITING [None]
